FAERS Safety Report 7716587-7 (Version None)
Quarter: 2011Q3

REPORT INFORMATION
  Report Type: 
  Country: None (occurrence: None)
  Receive Date: 20110829
  Receipt Date: 20110819
  Transmission Date: 20111222
  Serious: Yes (Hospitalization)
  Sender: FDA-Public Use
  Company Number: US-ASTRAZENECA-2011SE49855

PATIENT
  Sex: Male

DRUGS (2)
  1. SEROQUEL [Suspect]
     Indication: MAJOR DEPRESSION
     Route: 048
     Dates: start: 20110630
  2. CELEXA [Concomitant]
     Dates: start: 20110630

REACTIONS (3)
  - UNRESPONSIVE TO STIMULI [None]
  - DIARRHOEA [None]
  - HYPERPYREXIA [None]
